FAERS Safety Report 7214993-0 (Version None)
Quarter: 2011Q1

REPORT INFORMATION
  Report Type: 
  Country: None (occurrence: None)
  Receive Date: 20110107
  Receipt Date: 20100616
  Transmission Date: 20110831
  Serious: No
  Sender: FDA-Public Use
  Company Number: A0867839A

PATIENT
  Sex: Female

DRUGS (1)
  1. LOVAZA [Suspect]
     Dosage: 4G PER DAY
     Route: 048
     Dates: start: 20080818

REACTIONS (2)
  - DRUG ADMINISTRATION ERROR [None]
  - DYSGEUSIA [None]
